FAERS Safety Report 8145357-3 (Version None)
Quarter: 2012Q1

REPORT INFORMATION
  Report Type: 
  Country: None (occurrence: None)
  Receive Date: 20120217
  Receipt Date: 20120213
  Transmission Date: 20120608
  Serious: Yes (Other)
  Sender: FDA-Public Use
  Company Number: US-TEVA-322765USA

PATIENT
  Age: 2 Month
  Sex: Male

DRUGS (3)
  1. PROPRANOLOL [Suspect]
     Indication: HAEMANGIOMA
     Dosage: 0.5 MG/KG/DAY DIVIDED EVERY 8 HOURS
     Route: 065
  2. PROPRANOLOL [Suspect]
     Dosage: 2 MG/KG/DAY ON THIRD DAY
     Route: 065
  3. PROPRANOLOL [Suspect]
     Dosage: 1 MG/KG/DAY ON SECOND DAY
     Route: 065

REACTIONS (2)
  - DECREASED APPETITE [None]
  - CONSTIPATION [None]
